FAERS Safety Report 8391877-6 (Version None)
Quarter: 2012Q2

REPORT INFORMATION
  Report Type: 
  Country: None (occurrence: None)
  Receive Date: 20120529
  Receipt Date: 20120518
  Transmission Date: 20120825
  Serious: Yes (Other)
  Sender: FDA-Public Use
  Company Number: US-VIIV HEALTHCARE LIMITED-A0978413A

PATIENT

DRUGS (4)
  1. REYATAZ [Concomitant]
  2. EPZICOM [Suspect]
     Indication: HIV INFECTION
     Dosage: 1CAP PER DAY
     Route: 048
     Dates: end: 20120501
  3. INFLUENZA VACCINE UNSPECIFIED 2011-12 SEASON [Suspect]
     Indication: PROPHYLAXIS
     Dosage: 1INJ SINGLE DOSE
     Route: 030
     Dates: start: 20120101, end: 20120101
  4. NORVIR [Concomitant]

REACTIONS (1)
  - GUILLAIN-BARRE SYNDROME [None]
